FAERS Safety Report 5765353-0 (Version None)
Quarter: 2008Q2

REPORT INFORMATION
  Report Type: 
  Country: None (occurrence: None)
  Receive Date: 20080611
  Receipt Date: 20080604
  Transmission Date: 20081010
  Serious: Yes (Death, Hospitalization)
  Sender: FDA-Public Use
  Company Number: US-BAYER-200813637GPV

PATIENT
  Age: 62 Year
  Sex: Male

DRUGS (2)
  1. DACARBAZINE [Suspect]
     Indication: MALIGNANT MELANOMA
     Route: 042
     Dates: start: 20071203, end: 20071224
  2. IPILIMUMAB OR PLACEBO [Suspect]
     Indication: MALIGNANT MELANOMA
     Route: 042
     Dates: start: 20071203, end: 20071224

REACTIONS (3)
  - ARTERIAL THROMBOSIS LIMB [None]
  - MALIGNANT NEOPLASM PROGRESSION [None]
  - PERIPHERAL SENSORY NEUROPATHY [None]
